FAERS Safety Report 14150268 (Version 7)
Quarter: 2018Q2

REPORT INFORMATION
  Report Type: Spontaneous
  Country: DE (occurrence: DE)
  Receive Date: 20171101
  Receipt Date: 20180413
  Transmission Date: 20180711
  Serious: Yes (Hospitalization, Disabling, Other)
  Sender: FDA-Public Use
  Company Number: DE-PFIZER INC-2017468131

PATIENT
  Age: 48 Year
  Sex: Female
  Weight: 86 kg

DRUGS (4)
  1. ZELDOX [Suspect]
     Active Substance: ZIPRASIDONE
     Indication: SCHIZOPHRENIA
     Dosage: 20 MG, TWICE DAILY (EACH IN THE MORNING AND IN THE EVENING)
     Route: 048
     Dates: start: 1988, end: 20171027
  2. LATANELB [Concomitant]
     Active Substance: LATANOPROST
     Indication: INTRAOCULAR PRESSURE INCREASED
     Dosage: 1 DROP BOTH SIDES IN THE EVENING
     Route: 047
     Dates: start: 201710
  3. ZELDOX [Suspect]
     Active Substance: ZIPRASIDONE
     Dosage: 40 MG DAILY (20-0-20 MG)
     Route: 048
     Dates: start: 20080731
  4. ABILIFY [Concomitant]
     Active Substance: ARIPIPRAZOLE
     Dosage: 15 MG, UNK
     Dates: start: 2014, end: 2014

REACTIONS (2)
  - Glaucoma [Unknown]
  - Visual acuity reduced [Not Recovered/Not Resolved]

NARRATIVE: CASE EVENT DATE: 2003
